FAERS Safety Report 8073061-9 (Version None)
Quarter: 2012Q1

REPORT INFORMATION
  Report Type: 
  Country: None (occurrence: None)
  Receive Date: 20120126
  Receipt Date: 20120119
  Transmission Date: 20120608
  Serious: Yes (Hospitalization)
  Sender: FDA-Public Use
  Company Number: CA-BRISTOL-MYERS SQUIBB COMPANY-15031503

PATIENT
  Age: 76 Year
  Sex: Female

DRUGS (19)
  1. NIFEDIPINE [Concomitant]
  2. SIMVASTATIN [Concomitant]
  3. IMURAN [Concomitant]
  4. NUPERCAINAL [Concomitant]
  5. SENOKOT [Concomitant]
  6. FUROSEMIDE [Concomitant]
  7. NORVASC [Concomitant]
  8. CALCIUM + VITAMIN D [Concomitant]
  9. POTASSIUM CHLORIDE [Concomitant]
  10. NOVO-FURANTOIN [Concomitant]
  11. LACTULOSE [Concomitant]
     Dosage: PRO-LACTULOSE
  12. RANITIDINE [Concomitant]
  13. METOPROLOL TARTRATE [Concomitant]
  14. ORENCIA [Suspect]
     Indication: RHEUMATOID ARTHRITIS
     Dosage: INF:25;22MAR10;15JUN,13JUL10,28MAR11,18JUL,12OCT,28NOV11,LOT:1A70931,1C71233;EXP:OCT13,OCT13
     Route: 042
     Dates: start: 20091123
  15. NEURONTIN [Concomitant]
  16. ACTONEL [Concomitant]
  17. PREDNISONE [Concomitant]
  18. ASPIRIN [Concomitant]
     Dosage: PRO ASS EC
  19. AMLODIPINE [Concomitant]

REACTIONS (10)
  - PAIN IN EXTREMITY [None]
  - PNEUMONIA [None]
  - URINARY TRACT INFECTION [None]
  - DIZZINESS [None]
  - PRODUCTIVE COUGH [None]
  - BACK PAIN [None]
  - GENERAL PHYSICAL HEALTH DETERIORATION [None]
  - NERVE COMPRESSION [None]
  - OEDEMA PERIPHERAL [None]
  - HEADACHE [None]
